FAERS Safety Report 7250740-4 (Version None)
Quarter: 2011Q1

REPORT INFORMATION
  Report Type: 
  Country: None (occurrence: None)
  Receive Date: 20110118
  Receipt Date: 20110105
  Transmission Date: 20110831
  Serious: Yes (Hospitalization)
  Sender: FDA-Public Use
  Company Number: 1000018154

PATIENT
  Age: 33 Year
  Sex: Male

DRUGS (2)
  1. EQUAIL (MEPROBAMATE) (400 MILLIGRAM, TABLETS) [Suspect]
     Dosage: (4000 MG,ONCE), ORAL
     Route: 048
     Dates: start: 20100226, end: 20100226
  2. ESCITALOPRAM [Suspect]
     Dosage: (10 DOSAGE FORMS,ONCE), ORAL
     Route: 048
     Dates: start: 20100226, end: 20100226

REACTIONS (6)
  - BLOOD PRESSURE DECREASED [None]
  - ALCOHOL USE [None]
  - MULTIPLE DRUG OVERDOSE INTENTIONAL [None]
  - COMA SCALE ABNORMAL [None]
  - HYPOTHERMIA [None]
  - POISONING DELIBERATE [None]
